FAERS Safety Report 4819907-6 (Version None)
Quarter: 2005Q4

REPORT INFORMATION
  Report Type: 
  Country: None (occurrence: None)
  Receive Date: 20051103
  Receipt Date: 20051026
  Transmission Date: 20060501
  Serious: Yes (Hospitalization)
  Sender: FDA-Public Use
  Company Number: JP-MERCK-0511USA00038

PATIENT
  Age: 58 Year
  Sex: Male

DRUGS (1)
  1. PEPCID [Suspect]
     Route: 048
     Dates: start: 20010224

REACTIONS (4)
  - DEPRESSED LEVEL OF CONSCIOUSNESS [None]
  - METABOLIC ACIDOSIS [None]
  - RENAL IMPAIRMENT [None]
  - TREMOR [None]
